FAERS Safety Report 6070353-X (Version None)
Quarter: 2009Q1

REPORT INFORMATION
  Report Type: 
  Country: None (occurrence: None)
  Receive Date: 20090209
  Receipt Date: 20090202
  Transmission Date: 20090719
  Serious: Yes (Other)
  Sender: FDA-Public Use
  Company Number: US-ELI_LILLY_AND_COMPANY-US200812004665

PATIENT
  Age: 75 Year
  Sex: Female
  Weight: 58.957 kg

DRUGS (2)
  1. HUMALOG [Suspect]
     Indication: DIABETES MELLITUS
  2. HUMALOG [Suspect]

REACTIONS (7)
  - CATARACT [None]
  - DRUG DISPENSING ERROR [None]
  - EYE HAEMORRHAGE [None]
  - FEAR [None]
  - MEMORY IMPAIRMENT [None]
  - POST PROCEDURAL HAEMORRHAGE [None]
  - STRESS [None]
